FAERS Safety Report 4462715-9 (Version None)
Quarter: 2004Q3

REPORT INFORMATION
  Report Type: 
  Country: None (occurrence: None)
  Receive Date: 20040927
  Receipt Date: 20040914
  Transmission Date: 20050211
  Serious: Yes (Hospitalization)
  Sender: FDA-Public Use
  Company Number: 202336

PATIENT
  Age: 42 Year
  Sex: Female
  Weight: 81.6475 kg

DRUGS (2)
  1. AVONEX [Suspect]
     Indication: MULTIPLE SCLEROSIS
     Dosage: 30 MCG QW IM
     Route: 030
     Dates: start: 19990101
  2. PROLIXIN [Concomitant]

REACTIONS (5)
  - HALLUCINATION, AUDITORY [None]
  - INSOMNIA [None]
  - NASOPHARYNGITIS [None]
  - SUICIDAL IDEATION [None]
  - THINKING ABNORMAL [None]
